FAERS Safety Report 4571153-X (Version None)
Quarter: 2005Q1

REPORT INFORMATION
  Report Type: 
  Country: None (occurrence: None)
  Receive Date: 20050202
  Receipt Date: 20050114
  Transmission Date: 20050727
  Serious: Yes (Hospitalization)
  Sender: FDA-Public Use
  Company Number: GBS050116417

PATIENT
  Age: 8 Year
  Weight: 36 kg

DRUGS (5)
  1. STRATTERA [Suspect]
     Indication: ATTENTION DEFICIT/HYPERACTIVITY DISORDER
     Dosage: 40 MG
     Dates: start: 20041108
  2. RISPERIDONE [Concomitant]
  3. MELATONIN [Concomitant]
  4. LACTULOSE [Concomitant]
  5. SENNA [Concomitant]

REACTIONS (3)
  - ANXIETY [None]
  - HEADACHE [None]
  - TIC [None]
